FAERS Safety Report 7939374-3 (Version None)
Quarter: 2011Q4

REPORT INFORMATION
  Report Type: 
  Country: None (occurrence: None)
  Receive Date: 20111125
  Receipt Date: 20111115
  Transmission Date: 20120403
  Serious: Yes (Hospitalization)
  Sender: FDA-Public Use
  Company Number: US-BAYER-2011-016185

PATIENT
  Age: 27 Year
  Sex: Female
  Weight: 85 kg

DRUGS (6)
  1. INH [Concomitant]
     Indication: TUBERCULIN TEST POSITIVE
     Dosage: UNK UNK, QD
     Route: 048
  2. DROSPIRENONE AND ETHINYL ESTRADIOL [Suspect]
     Indication: PREMENSTRUAL SYNDROME
     Dosage: UNK
     Dates: start: 20081008, end: 20090204
  3. BYETTA [Concomitant]
  4. PREVACID [Concomitant]
     Dosage: UNK UNK, PRN
  5. DROSPIRENONE AND ETHINYL ESTRADIOL [Suspect]
     Indication: MENSTRUAL DISORDER
  6. PYRIDOXINE HCL [Concomitant]
     Indication: TUBERCULIN TEST POSITIVE
     Dosage: UNK UNK, QD

REACTIONS (7)
  - ABDOMINAL PAIN UPPER [None]
  - ATELECTASIS [None]
  - PAIN IN EXTREMITY [None]
  - GROIN PAIN [None]
  - CHEST PAIN [None]
  - PLEURAL EFFUSION [None]
  - PULMONARY EMBOLISM [None]
